FAERS Safety Report 10548175 (Version 1)
Quarter: 2014Q4

REPORT INFORMATION
  Report Type: Spontaneous
  Country: HU (occurrence: HU)
  Receive Date: 20141028
  Receipt Date: 20141028
  Transmission Date: 20150529
  Serious: Yes (Other)
  Sender: FDA-Public Use
  Company Number: HU-BAYER-2014-154590

PATIENT
  Age: 56 Year
  Sex: Female

DRUGS (1)
  1. BETAFERON [Suspect]
     Active Substance: INTERFERON BETA-1B
     Indication: MULTIPLE SCLEROSIS
     Dosage: UNK
     Route: 058
     Dates: start: 201102, end: 201409

REACTIONS (6)
  - Pain in extremity [None]
  - Injection site erythema [None]
  - Multiple sclerosis relapse [None]
  - Chills [None]
  - Injection site swelling [None]
  - Pyrexia [None]

NARRATIVE: CASE EVENT DATE: 201404
